FAERS Safety Report 8962322 (Version 1)
Quarter: 2012Q4

REPORT INFORMATION
  Report Type: Spontaneous
  Country: US (occurrence: None)
  Receive Date: 20121211
  Receipt Date: 20121211
  Transmission Date: 20130627
  Serious: No
  Sender: FDA-Public Use
  Company Number: None

PATIENT
  Age: 68 None
  Sex: Female
  Weight: 81.65 kg

DRUGS (2)
  1. HYDROMET [Suspect]
     Indication: COUGH
     Dosage: 5 mg-1.5mg/5ml syrup, one teaspoonful, every 4 to 6 hours, mouth
     Route: 048
     Dates: start: 20121112, end: 20121113
  2. HYDROMET [Suspect]
     Indication: BRONCHITIS
     Dosage: 5 mg-1.5mg/5ml syrup, one teaspoonful, every 4 to 6 hours, mouth
     Route: 048
     Dates: start: 20121112, end: 20121113

REACTIONS (4)
  - Nausea [None]
  - Vomiting [None]
  - Fluid intake reduced [None]
  - Hypophagia [None]
